FAERS Safety Report 5258623-6 (Version None)
Quarter: 2007Q1

REPORT INFORMATION
  Report Type: 
  Country: None (occurrence: None)
  Receive Date: 20070308
  Receipt Date: 20070212
  Transmission Date: 20070707
  Serious: Yes (Death)
  Sender: FDA-Public Use
  Company Number: MX-ROCHE-482794

PATIENT
  Age: 30 Year
  Sex: Male

DRUGS (4)
  1. FORTOVASE [Suspect]
     Dosage: DOSAGE REGIMEN REPORTED AS 10 EVERY DAY.
     Route: 048
     Dates: start: 20060317, end: 20070204
  2. RITONAVIR [Suspect]
     Dosage: DOSAGE REGIMEN REPORTED AS ^EVERY DAY^.
     Route: 048
     Dates: start: 20060317, end: 20070204
  3. COMBIVIR [Suspect]
     Dosage: DOSAGE REGIMEN REPORTED AS 2 EVERY DAY.
     Route: 048
     Dates: start: 20060317, end: 20070115
  4. ABACAVIR/LAMIVUDINE [Suspect]
     Dosage: DOSAGE REGIMEN REPORTED AS 2 QD.
     Route: 048
     Dates: start: 20070115, end: 20070204

REACTIONS (1)
  - PANCYTOPENIA [None]
